FAERS Safety Report 5434311-8 (Version None)
Quarter: 2007Q3

REPORT INFORMATION
  Report Type: 
  Country: None (occurrence: None)
  Receive Date: 20070831
  Receipt Date: 20070822
  Transmission Date: 20080115
  Serious: No
  Sender: FDA-Public Use
  Company Number: NL-AMGEN-UK240665

PATIENT
  Sex: Female
  Weight: 60 kg

DRUGS (4)
  1. MIMPARA [Suspect]
     Indication: HYPERPARATHYROIDISM SECONDARY
     Route: 048
     Dates: start: 20070501, end: 20070817
  2. PREDNISOLONE [Concomitant]
     Route: 048
     Dates: start: 20070601
  3. TACROLIMUS [Concomitant]
     Route: 048
     Dates: start: 20060601
  4. PANTOPRAZOLE SODIUM [Concomitant]
     Route: 048
     Dates: start: 20070601

REACTIONS (3)
  - ECZEMA [None]
  - MALAISE [None]
  - PRURITUS [None]
